FAERS Safety Report 10608309 (Version 1)
Quarter: 2014Q4

REPORT INFORMATION
  Report Type: Report from Study
  Country: CA (occurrence: CA)
  Receive Date: 20141125
  Receipt Date: 20141125
  Transmission Date: 20150529
  Serious: Yes (Hospitalization, Other)
  Sender: FDA-Public Use
  Company Number: CA-ABBVIE-14P-028-1312229-00

PATIENT
  Age: 61 Year
  Sex: Male

DRUGS (1)
  1. LUPRON DEPOT [Suspect]
     Active Substance: LEUPROLIDE ACETATE
     Indication: PROSTATE CANCER
     Dosage: 2 COURSES
     Route: 058
     Dates: start: 20130504, end: 20140909

REACTIONS (2)
  - Cholesteatoma [Recovered/Resolved]
  - Deafness [Unknown]
